FAERS Safety Report 6090403-4 (Version None)
Quarter: 2009Q1

REPORT INFORMATION
  Report Type: 
  Country: None (occurrence: None)
  Receive Date: 20090224
  Receipt Date: 20081226
  Transmission Date: 20090719
  Serious: No
  Sender: FDA-Public Use
  Company Number: US-ABBOTT-08P-163-0495065-00

PATIENT
  Sex: Female
  Weight: 61.29 kg

DRUGS (4)
  1. SIMCOR [Suspect]
     Indication: ARTERIAL OCCLUSIVE DISEASE
     Dosage: 500/20 DAILY
     Route: 048
     Dates: start: 20080901
  2. HYPERTENSION DRUG [Concomitant]
     Indication: HYPERTENSION
  3. ASCORBIC ACID [Concomitant]
     Indication: ROUTINE HEALTH MAINTENANCE
  4. VITAMIN E [Concomitant]
     Indication: ROUTINE HEALTH MAINTENANCE

REACTIONS (5)
  - ASTHENIA [None]
  - ILL-DEFINED DISORDER [None]
  - MYALGIA [None]
  - NERVOUSNESS [None]
  - PAIN IN EXTREMITY [None]
